FAERS Safety Report 13615889 (Version 1)
Quarter: 2017Q2

REPORT INFORMATION
  Report Type: Report from Study
  Country: US (occurrence: US)
  Receive Date: 20170606
  Receipt Date: 20170606
  Transmission Date: 20170830
  Serious: Yes (Life-Threatening)
  Sender: FDA-Public Use
  Company Number: US-BION-006373

PATIENT
  Age: 16 Year
  Sex: Female

DRUGS (3)
  1. LOPERAMIDE UNKNOWN PRODUCT [Suspect]
     Active Substance: LOPERAMIDE
  2. PARACETAMOL [Suspect]
     Active Substance: ACETAMINOPHEN
  3. LORATADINE. [Suspect]
     Active Substance: LORATADINE

REACTIONS (3)
  - Suicide attempt [Unknown]
  - Lethargy [Unknown]
  - Coma [Unknown]
